FAERS Safety Report 10559171 (Version 1)
Quarter: 2014Q4

REPORT INFORMATION
  Report Type: Spontaneous
  Country: US (occurrence: US)
  Receive Date: 20141103
  Receipt Date: 20141103
  Transmission Date: 20150529
  Serious: Yes (Other)
  Sender: FDA-Public Use
  Company Number: US-TEVA-519097USA

PATIENT
  Age: 10 Year
  Sex: Male
  Weight: 53 kg

DRUGS (2)
  1. ISONIAZID. [Suspect]
     Active Substance: ISONIAZID
     Indication: LATENT TUBERCULOSIS
     Dosage: 300MG DAILY
     Route: 065
  2. RIFAMPICIN [Suspect]
     Active Substance: RIFAMPIN
     Indication: LATENT TUBERCULOSIS
     Dosage: 600MG
     Route: 048

REACTIONS (2)
  - Hypersensitivity [Recovered/Resolved]
  - Type I hypersensitivity [Recovered/Resolved]
